FAERS Safety Report 6368359-6 (Version None)
Quarter: 2009Q3

REPORT INFORMATION
  Report Type: 
  Country: None (occurrence: None)
  Receive Date: 20090922
  Receipt Date: 20090911
  Transmission Date: 20100115
  Serious: Yes (Hospitalization)
  Sender: FDA-Public Use
  Company Number: GB-BAYER-200932216GPV

PATIENT
  Sex: Female

DRUGS (2)
  1. CANESTEN INTERNAL CREAM [Suspect]
     Indication: CANDIDIASIS
  2. CANESTEN ORAL CAPSULE [Suspect]
     Indication: CANDIDIASIS

REACTIONS (2)
  - PAIN [None]
  - UNEVALUABLE EVENT [None]
